FAERS Safety Report 11786229 (Version 5)
Quarter: 2018Q4

REPORT INFORMATION
  Report Type: Spontaneous
  Country: IT (occurrence: IT)
  Receive Date: 20151130
  Receipt Date: 20181103
  Transmission Date: 20190204
  Serious: Yes (Life-Threatening, Hospitalization)
  Sender: FDA-Public Use
  Company Number: IT-TEVA-611200ACC

PATIENT
  Age: 72 Year
  Sex: Female

DRUGS (25)
  1. LORAZEPAM. [Suspect]
     Active Substance: LORAZEPAM
     Dosage: 20 GTT DAILY; 1 MG, 20 DROPS, AT NIGHT
     Route: 065
  2. RIVOTRIL [Suspect]
     Active Substance: CLONAZEPAM
     Indication: PRODUCT USED FOR UNKNOWN INDICATION
     Dosage: 28 GTT DAILY; 1.8 MG, 28 GTT, AT NIGHT
     Route: 065
  3. RIVOTRIL [Suspect]
     Active Substance: CLONAZEPAM
     Dosage: 15 GTT DAILY;
     Route: 065
  4. TRIAZOLAM. [Suspect]
     Active Substance: TRIAZOLAM
     Indication: PRODUCT USED FOR UNKNOWN INDICATION
     Dosage: .25 MILLIGRAM DAILY; , AT NIGHT
     Route: 065
  5. TRITTICO - AZIENDE CHIMICHE RIUNITE ANGELINI FRANCESCO ACRAF SPA [Suspect]
     Active Substance: TRAZODONE HYDROCHLORIDE
     Route: 065
     Dates: start: 2015
  6. QUETIAPINE. [Suspect]
     Active Substance: QUETIAPINE
     Indication: PRODUCT USED FOR UNKNOWN INDICATION
     Dosage: 25 MILLIGRAM DAILY;
     Route: 048
  7. LORAZEPAM. [Suspect]
     Active Substance: LORAZEPAM
     Indication: PRODUCT USED FOR UNKNOWN INDICATION
     Dosage: 68 GTT DAILY; 1 MG, 20 GTT, AT NIGHT
     Route: 065
  8. TRITTICO - AZIENDE CHIMICHE RIUNITE ANGELINI FRANCESCO ACRAF SPA [Suspect]
     Active Substance: TRAZODONE HYDROCHLORIDE
     Indication: PRODUCT USED FOR UNKNOWN INDICATION
     Dosage: 15 GTT DAILY; 60 MG/ML, 15 GTT, AT NIGHT
     Route: 065
  9. RIVOTRIL [Suspect]
     Active Substance: CLONAZEPAM
     Dosage: 15 GTT DAILY;
     Route: 065
     Dates: start: 2015, end: 2015
  10. LORAZEPAM. [Suspect]
     Active Substance: LORAZEPAM
     Dosage: 20 GTT DAILY;
     Route: 065
     Dates: start: 2015, end: 2015
  11. CARDIOASPIRIN - BAYER S.P.A. [Suspect]
     Active Substance: ASPIRIN
     Indication: PRODUCT USED FOR UNKNOWN INDICATION
     Dosage: 1 DOSAGE FORMS DAILY; DAILY
     Route: 065
  12. RIVOTRIL [Suspect]
     Active Substance: CLONAZEPAM
     Dosage: 1.80 MG 18 DROPS
     Route: 065
     Dates: start: 2015, end: 2015
  13. LORAZEPAM. [Suspect]
     Active Substance: LORAZEPAM
     Dosage: 0.9 MG 18 DROPS
     Route: 065
     Dates: start: 2015, end: 2015
  14. OLANZAPINE. [Suspect]
     Active Substance: OLANZAPINE
     Route: 065
     Dates: start: 2015, end: 2015
  15. BRILIQUE - ASTRAZENECA AB [Suspect]
     Active Substance: TICAGRELOR
     Indication: PRODUCT USED FOR UNKNOWN INDICATION
     Dosage: 180 MILLIGRAM DAILY;
     Route: 048
  16. RIVOTRIL [Suspect]
     Active Substance: CLONAZEPAM
     Dosage: 18 GTT DAILY;
     Route: 065
  17. TIROSINT [Suspect]
     Active Substance: LEVOTHYROXINE SODIUM
     Indication: HYPOTHYROIDISM
     Route: 065
  18. OLANZAPINE. [Suspect]
     Active Substance: OLANZAPINE
     Indication: PRODUCT USED FOR UNKNOWN INDICATION
     Dosage: 5.0 MILLIGRAMS, AT NIGHT
     Route: 065
     Dates: start: 201503
  19. LOPRESOR - DAIICHI SANKYO ITALIA S.P.A. [Suspect]
     Active Substance: METOPROLOL TARTRATE
     Indication: PRODUCT USED FOR UNKNOWN INDICATION
     Dosage: 25 MILLIGRAM DAILY;
     Route: 048
  20. TRITTICO - AZIENDE CHIMICHE RIUNITE ANGELINI FRANCESCO ACRAF SPA [Suspect]
     Active Substance: TRAZODONE HYDROCHLORIDE
     Route: 065
     Dates: start: 201501, end: 201507
  21. RIVOTRIL [Suspect]
     Active Substance: CLONAZEPAM
     Dosage: 10 DROPS
     Route: 065
     Dates: start: 2015
  22. ATORVASTATIN [Suspect]
     Active Substance: ATORVASTATIN
     Indication: PRODUCT USED FOR UNKNOWN INDICATION
     Dosage: 40 MILLIGRAM DAILY;
     Route: 048
  23. LORAZEPAM. [Suspect]
     Active Substance: LORAZEPAM
     Dosage: 0.75 MG 15 DROPS
     Route: 065
     Dates: start: 2015, end: 2015
  24. OLANZAPINE. [Suspect]
     Active Substance: OLANZAPINE
     Dosage: 2.5 MILLIGRAM DAILY;
     Route: 065
     Dates: start: 201501, end: 201503
  25. TRITTICO - AZIENDE CHIMICHE RIUNITE ANGELINI FRANCESCO ACRAF SPA [Suspect]
     Active Substance: TRAZODONE HYDROCHLORIDE
     Route: 065

REACTIONS (13)
  - Discomfort [Unknown]
  - Suicide attempt [Unknown]
  - Weight increased [Unknown]
  - Blood pressure decreased [Unknown]
  - Hypothyroidism [Unknown]
  - Feeling cold [Unknown]
  - Myocardial ischaemia [Unknown]
  - Epistaxis [Unknown]
  - Electrocardiogram T wave inversion [Unknown]
  - Fatigue [Unknown]
  - Dyspnoea [Unknown]
  - Electrocardiogram QT prolonged [Unknown]
  - Malaise [Unknown]

NARRATIVE: CASE EVENT DATE: 201507
